FAERS Safety Report 5102719-6 (Version None)
Quarter: 2006Q3

REPORT INFORMATION
  Report Type: 
  Country: None (occurrence: None)
  Receive Date: 20060907
  Receipt Date: 20060712
  Transmission Date: 20061208
  Serious: Yes (Hospitalization)
  Sender: FDA-Public Use
  Company Number: 805#1#2006-00084

PATIENT
  Age: 79 Year
  Sex: Female

DRUGS (8)
  1. ALPROSTADIL [Suspect]
     Indication: ULCER
     Dosage: 210 MCG CUTANEOUS
     Route: 003
     Dates: start: 20060628, end: 20060704
  2. ACETYLSALICYLIC ACID BAYER (ACETYLSALICYLIC ACID) [Suspect]
     Indication: THROMBOSIS PROPHYLAXIS
     Dosage: 100 MG ORAL
     Route: 048
     Dates: start: 20060530, end: 20060710
  3. AMLODIPINE BESYLATE [Suspect]
     Indication: HYPERTENSION
     Dosage: 5 MG ORAL
     Route: 048
     Dates: start: 20060531, end: 20060710
  4. PHENYTOIN [Suspect]
     Indication: CONVULSION
     Dosage: 300 MG ORAL
     Route: 048
     Dates: start: 20060602, end: 20060710
  5. CINAL (ASCORBIC ACID, CALCIUM PANTOTHENATE) [Suspect]
     Indication: HYPOVITAMINOSIS
     Dosage: 3 G ORAL
     Route: 048
     Dates: start: 20060602, end: 20060710
  6. TEPRENONE (TEPRENONE) [Suspect]
     Indication: PROPHYLAXIS AGAINST GASTROINTESTINAL ULCER
     Dosage: 150 MG ORAL
     Route: 048
     Dates: start: 20060601, end: 20060710
  7. MAGNESIUM OXIDE (MAGNESIUM OXIDE) [Suspect]
     Indication: CONSTIPATION
     Dosage: 1500 MG ORAL
     Route: 048
     Dates: start: 20060602, end: 20060710
  8. NEOMYCIN SULFATE [Suspect]
     Indication: INFECTION PROPHYLAXIS
     Dosage: 2 DF TRANSDERMAL
     Route: 062
     Dates: start: 20060628, end: 20060710

REACTIONS (5)
  - CORONARY ARTERY BYPASS [None]
  - EOSINOPHIL COUNT INCREASED [None]
  - EPIDERMAL NECROSIS [None]
  - ERYTHEMA MULTIFORME [None]
  - POSTOPERATIVE WOUND COMPLICATION [None]
